FAERS Safety Report 17680003 (Version 2)
Quarter: 2020Q2

REPORT INFORMATION
  Report Type: Spontaneous
  Country: US (occurrence: US)
  Receive Date: 20200417
  Receipt Date: 20200522
  Transmission Date: 20200714
  Serious: Yes (Other)
  Sender: FDA-Public Use
  Company Number: US-BAUSCH-BL-2020-010978

PATIENT
  Age: 70 Year
  Sex: Female

DRUGS (3)
  1. LATANOPROST OPHTHALMIC SOLUTION 0.005% [Suspect]
     Active Substance: LATANOPROST
     Indication: GLAUCOMA
     Dosage: 1 DROP IN THE RIGHT EYE ONCE DAILY, MANY YEARS AGO
     Route: 047
  2. LATANOPROST OPHTHALMIC SOLUTION 0.005% [Suspect]
     Active Substance: LATANOPROST
     Dosage: RECEIVED NEW REFILL FOR LATANOPROST, USED AROUND 15/FEB/2020
     Route: 047
     Dates: start: 202002, end: 20200328
  3. LATANOPROST OPHTHALMIC SOLUTION 0.005% [Suspect]
     Active Substance: LATANOPROST
     Dosage: RECEIVED ANOTHER REFILL FOR LATANOPROST.
     Route: 047
     Dates: start: 2020

REACTIONS (3)
  - Eye haemorrhage [Unknown]
  - Product quality issue [Unknown]
  - Product packaging difficult to open [Unknown]

NARRATIVE: CASE EVENT DATE: 2020
